FAERS Safety Report 17975903 (Version 3)
Quarter: 2020Q3

REPORT INFORMATION
  Report Type: Spontaneous
  Country: US (occurrence: US)
  Receive Date: 20200702
  Receipt Date: 20200929
  Transmission Date: 20201103
  Serious: No
  Sender: FDA-Public Use
  Company Number: US-JNJFOC-20200631012

PATIENT
  Age: 73 Year
  Sex: Female
  Weight: 59.93 kg

DRUGS (4)
  1. WOMENS ROGAINE UNSCENTED [Suspect]
     Active Substance: MINOXIDIL
     Dosage: DOSE, ABOUT A CAP FULL ONCE DAILY
     Route: 061
     Dates: start: 20200629
  2. SPIRONOLACTONE. [Concomitant]
     Active Substance: SPIRONOLACTONE
     Indication: ALOPECIA
     Route: 065
     Dates: start: 2013
  3. WOMENS ROGAINE UNSCENTED [Suspect]
     Active Substance: MINOXIDIL
     Dosage: DOSE, ABOUT A CAP FULL ONCE DAILY
     Route: 061
     Dates: start: 20200618, end: 20200628
  4. WOMENS ROGAINE UNSCENTED [Suspect]
     Active Substance: MINOXIDIL
     Indication: ALOPECIA
     Dosage: DOSE, ABOUT A CAP FULL ONCE USED.PRODUCT WAS LAST USED ON 04/JAN/2020
     Route: 061
     Dates: start: 20200104

REACTIONS (2)
  - Expired product administered [Unknown]
  - Incorrect dose administered [Unknown]

NARRATIVE: CASE EVENT DATE: 20200104
